FAERS Safety Report 15247229 (Version 1)
Quarter: 2018Q3

REPORT INFORMATION
  Report Type: Spontaneous
  Country: US (occurrence: US)
  Receive Date: 20180807
  Receipt Date: 20180807
  Transmission Date: 20181010
  Serious: Yes (Death, Hospitalization, Other)
  Sender: FDA-Public Use
  Company Number: US-CIPLA LTD.-2018US20411

PATIENT

DRUGS (8)
  1. CARBOPLATIN. [Suspect]
     Active Substance: CARBOPLATIN
     Indication: METASTASES TO BONE
  2. 5 FLUORO URACIL [Suspect]
     Active Substance: FLUOROURACIL
     Indication: HORMONE-REFRACTORY PROSTATE CANCER
  3. TESTOSTERONE. [Suspect]
     Active Substance: TESTOSTERONE
     Indication: SUPPLEMENTATION THERAPY
  4. CARBOPLATIN. [Suspect]
     Active Substance: CARBOPLATIN
     Indication: HORMONE-REFRACTORY PROSTATE CANCER
     Dosage: UNK
     Route: 065
  5. TAXOTERE [Suspect]
     Active Substance: DOCETAXEL
     Indication: METASTASES TO BONE
  6. TESTOSTERONE. [Suspect]
     Active Substance: TESTOSTERONE
     Indication: METASTASES TO BONE MARROW
     Dosage: UNK
     Route: 065
  7. TAXOTERE [Suspect]
     Active Substance: DOCETAXEL
     Indication: HORMONE-REFRACTORY PROSTATE CANCER
     Dosage: UNK
     Route: 065
  8. 5 FLUORO URACIL [Suspect]
     Active Substance: FLUOROURACIL
     Indication: METASTASES TO BONE
     Dosage: 200 MG/M2, UNK
     Route: 042

REACTIONS (9)
  - Hypotension [Unknown]
  - Performance status decreased [Unknown]
  - Intestinal haemorrhage [Fatal]
  - Metastases to bone marrow [Unknown]
  - Anaemia [Unknown]
  - Blood lactate dehydrogenase increased [Unknown]
  - Prostatic specific antigen increased [Recovering/Resolving]
  - Hypoxia [Unknown]
  - Thrombocytopenia [Recovering/Resolving]
